FAERS Safety Report 5891950-8 (Version None)
Quarter: 2008Q3

REPORT INFORMATION
  Report Type: 
  Country: None (occurrence: None)
  Receive Date: 20080908
  Receipt Date: 20080711
  Transmission Date: 20090109
  Serious: No
  Sender: FDA-Public Use
  Company Number: 002#1#2008-00572

PATIENT
  Age: 62 Year
  Sex: Female
  Weight: 81.1939 kg

DRUGS (3)
  1. NEUPRO [Suspect]
     Indication: RESTLESS LEGS SYNDROME
     Dosage: 4MG/24H, 1 IN 1 D, TRANSDERMAL : 8MG/24H, 1 IN 1 D, TRANSDERMAL
     Route: 062
     Dates: start: 20070703, end: 20070701
  2. NEUPRO [Suspect]
     Indication: RESTLESS LEGS SYNDROME
     Dosage: 4MG/24H, 1 IN 1 D, TRANSDERMAL : 8MG/24H, 1 IN 1 D, TRANSDERMAL
     Route: 062
     Dates: start: 20070701, end: 20070801
  3. NEUPRO [Suspect]
     Indication: RESTLESS LEGS SYNDROME
     Dosage: 4MG/24H, 1 IN 1 D, TRANSDERMAL : 8MG/24H, 1 IN 1 D, TRANSDERMAL
     Route: 062
     Dates: start: 20070801, end: 20080301

REACTIONS (4)
  - APPLICATION SITE PRURITUS [None]
  - APPLICATION SITE REACTION [None]
  - OFF LABEL USE [None]
  - OVERDOSE [None]
